FAERS Safety Report 9065984 (Version 1)
Quarter: 2013Q1

REPORT INFORMATION
  Report Type: Spontaneous
  Country: US (occurrence: US)
  Receive Date: 20130214
  Receipt Date: 20130214
  Transmission Date: 20140127
  Serious: Yes (Hospitalization)
  Sender: FDA-Public Use
  Company Number: US-B.I. PHARMACEUTICALS,INC./RIDGEFIELD-2013-BI-03680BP

PATIENT
  Sex: Female

DRUGS (15)
  1. PRADAXA [Suspect]
     Indication: ATRIAL FIBRILLATION
     Dosage: 300 MG
     Route: 048
     Dates: start: 2011
  2. PLAVIX [Concomitant]
     Dosage: 75 MG
     Route: 048
  3. FUROSEMIDE [Concomitant]
     Dosage: 20 MG
     Route: 048
  4. FUROSEMIDE [Concomitant]
     Route: 048
  5. RESTORIL [Concomitant]
     Dosage: 30 MG
     Route: 048
  6. FAMOTIDINE [Concomitant]
     Indication: REFLUX GASTRITIS
     Dosage: 20 MG
     Route: 048
  7. SINGULAIR [Concomitant]
     Dosage: 10 MG
     Route: 048
  8. CYMBALTA [Concomitant]
     Indication: MOOD DISORDER DUE TO A GENERAL MEDICAL CONDITION
     Dosage: 60 MG
     Route: 048
  9. CETIRIZINE [Concomitant]
     Route: 048
  10. ASPIRIN [Concomitant]
     Dosage: 81 MG
     Route: 048
  11. METOPROLOL TARTRATE [Concomitant]
     Route: 048
  12. GABAPENTIN [Concomitant]
     Dosage: 1200 MG
     Route: 048
  13. AMARYL [Concomitant]
     Indication: DIABETES MELLITUS
     Dosage: 4 MG
     Route: 048
  14. DIGOXIN [Concomitant]
     Dosage: 125 MCG
     Route: 048
  15. ASMANEX [Concomitant]
     Route: 055

REACTIONS (2)
  - Fall [Recovered/Resolved]
  - Laceration [Recovered/Resolved]
